FAERS Safety Report 8911257 (Version 3)
Quarter: 2012Q4

REPORT INFORMATION
  Report Type: 
  Country: JP (occurrence: JP)
  Receive Date: 20121115
  Receipt Date: 20121213
  Transmission Date: 20130627
  Serious: Yes (Disabling, Other)
  Sender: FDA-Public Use
  Company Number: JP-BRISTOL-MYERS SQUIBB COMPANY-17116658

PATIENT
  Age: 55 Year
  Sex: Female
  Weight: 45 kg

DRUGS (1)
  1. TAXOL INJ [Suspect]
     Indication: BREAST CANCER
     Dosage: last day of administration: 30-Oct-12
     Route: 042
     Dates: start: 20120807, end: 20121030

REACTIONS (2)
  - Macular oedema [Recovering/Resolving]
  - Visual acuity reduced [Not Recovered/Not Resolved]
